FAERS Safety Report 11827166 (Version 2)
Quarter: 2016Q1

REPORT INFORMATION
  Report Type: Spontaneous
  Country: GB (occurrence: GB)
  Receive Date: 20151211
  Receipt Date: 20160209
  Transmission Date: 20160525
  Serious: Yes (Other)
  Sender: FDA-Public Use
  Company Number: GB-009507513-0803USA04049

PATIENT
  Sex: Female

DRUGS (3)
  1. IMPLANON [Suspect]
     Active Substance: ETONOGESTREL
     Indication: CONTRACEPTION
     Route: 058
     Dates: start: 2006
  2. COMBIVIR [Interacting]
     Active Substance: LAMIVUDINE\ZIDOVUDINE
     Indication: RETROVIRAL INFECTION
     Dosage: 300+150MG, QD
     Route: 048
  3. EFAVIRENZ [Interacting]
     Active Substance: EFAVIRENZ
     Indication: RETROVIRAL INFECTION
     Dosage: UNK
     Route: 048

REACTIONS (2)
  - Pregnancy with implant contraceptive [Recovered/Resolved]
  - Drug interaction [Unknown]
